FAERS Safety Report 18280889 (Version 1)
Quarter: 2020Q3

REPORT INFORMATION
  Report Type: Spontaneous
  Country: CA (occurrence: CA)
  Receive Date: 20200918
  Receipt Date: 20200918
  Transmission Date: 20201103
  Serious: Yes (Other)
  Sender: FDA-Public Use
  Company Number: CA-DRREDDYS-USA/CAN/20/0126946

PATIENT
  Age: 61 Year
  Sex: Female

DRUGS (89)
  1. COMBIVENT [Suspect]
     Active Substance: ALBUTEROL SULFATE\IPRATROPIUM BROMIDE
     Indication: PRODUCT USED FOR UNKNOWN INDICATION
  2. FLOVENT [Suspect]
     Active Substance: FLUTICASONE PROPIONATE
  3. FUROSEMIDE. [Suspect]
     Active Substance: FUROSEMIDE
     Indication: PRODUCT USED FOR UNKNOWN INDICATION
  4. FUROSEMIDE. [Suspect]
     Active Substance: FUROSEMIDE
  5. NITROGLYCERIN. [Suspect]
     Active Substance: NITROGLYCERIN
  6. PREDNISONE. [Suspect]
     Active Substance: PREDNISONE
     Indication: PRODUCT USED FOR UNKNOWN INDICATION
  7. QUINAPRIL HYDROCHLORIDE. [Suspect]
     Active Substance: QUINAPRIL HYDROCHLORIDE
     Indication: PRODUCT USED FOR UNKNOWN INDICATION
  8. QUINAPRIL HYDROCHLORIDE. [Suspect]
     Active Substance: QUINAPRIL HYDROCHLORIDE
  9. QUINAPRIL HYDROCHLORIDE. [Suspect]
     Active Substance: QUINAPRIL HYDROCHLORIDE
  10. SALBUTAMOL [Suspect]
     Active Substance: ALBUTEROL
  11. THEOPHYLLINE [Suspect]
     Active Substance: THEOPHYLLINE ANHYDROUS
  12. UNIPHYL [Suspect]
     Active Substance: THEOPHYLLINE ANHYDROUS
  13. UNIPHYL [Suspect]
     Active Substance: THEOPHYLLINE ANHYDROUS
  14. VITAMIN B12 [Suspect]
     Active Substance: CYANOCOBALAMIN
  15. APO?PREDNISONE [Suspect]
     Active Substance: PREDNISONE
     Indication: PRODUCT USED FOR UNKNOWN INDICATION
     Route: 048
  16. DILTIAZEM HYDROCHLORIDE. [Suspect]
     Active Substance: DILTIAZEM HYDROCHLORIDE
     Indication: PRODUCT USED FOR UNKNOWN INDICATION
  17. LACTASE [Suspect]
     Active Substance: LACTASE
  18. MEPOLIZUMAB [Suspect]
     Active Substance: MEPOLIZUMAB
  19. MOMETASONE [Suspect]
     Active Substance: MOMETASONE
     Indication: PRODUCT USED FOR UNKNOWN INDICATION
  20. MONTELUKAST [Suspect]
     Active Substance: MONTELUKAST SODIUM
  21. NITROGLYCERIN. [Suspect]
     Active Substance: NITROGLYCERIN
  22. NOVORAPID [Suspect]
     Active Substance: INSULIN ASPART
     Indication: PRODUCT USED FOR UNKNOWN INDICATION
     Route: 058
  23. PREDNISONE. [Suspect]
     Active Substance: PREDNISONE
  24. SPIRIVA RESPIMAT [Suspect]
     Active Substance: TIOTROPIUM BROMIDE
     Indication: PRODUCT USED FOR UNKNOWN INDICATION
     Dosage: 5G/DOSE
  25. THEOPHYLLINE [Suspect]
     Active Substance: THEOPHYLLINE ANHYDROUS
     Indication: PRODUCT USED FOR UNKNOWN INDICATION
  26. THEOPHYLLINE [Suspect]
     Active Substance: THEOPHYLLINE ANHYDROUS
  27. VITAMIN B12 [Suspect]
     Active Substance: CYANOCOBALAMIN
     Indication: PRODUCT USED FOR UNKNOWN INDICATION
     Route: 042
  28. ADVAIR HFA [Suspect]
     Active Substance: FLUTICASONE PROPIONATE\SALMETEROL XINAFOATE
     Indication: PRODUCT USED FOR UNKNOWN INDICATION
  29. ADVAIR HFA [Suspect]
     Active Substance: FLUTICASONE PROPIONATE\SALMETEROL XINAFOATE
  30. APO?ATORVASTATIN [Suspect]
     Active Substance: ATORVASTATIN
     Indication: PRODUCT USED FOR UNKNOWN INDICATION
     Route: 048
  31. APO?PREDNISONE [Suspect]
     Active Substance: PREDNISONE
     Route: 048
  32. DIMENHYDRINATE. [Suspect]
     Active Substance: DIMENHYDRINATE
     Indication: PRODUCT USED FOR UNKNOWN INDICATION
  33. LACTASE [Suspect]
     Active Substance: LACTASE
     Indication: PRODUCT USED FOR UNKNOWN INDICATION
  34. MONTELUKAST [Suspect]
     Active Substance: MONTELUKAST SODIUM
  35. PMS?NITROFURANTOIN [Suspect]
     Active Substance: NITROFURANTOIN
  36. PREDNISONE. [Suspect]
     Active Substance: PREDNISONE
  37. SALBUTAMOL [Suspect]
     Active Substance: ALBUTEROL
  38. BETAMETHASONE VALERATE. [Suspect]
     Active Substance: BETAMETHASONE VALERATE
     Indication: ECZEMA
     Route: 061
  39. LOPERAMIDE [Suspect]
     Active Substance: LOPERAMIDE
  40. NITROGLYCERIN. [Suspect]
     Active Substance: NITROGLYCERIN
  41. PMS?NITROFURANTOIN [Suspect]
     Active Substance: NITROFURANTOIN
  42. PREDNISONE. [Suspect]
     Active Substance: PREDNISONE
  43. RATIO?LACTULOSE [Suspect]
     Active Substance: LACTULOSE
  44. SPIRIVA RESPIMAT [Suspect]
     Active Substance: TIOTROPIUM BROMIDE
  45. THEOPHYLLINE [Suspect]
     Active Substance: THEOPHYLLINE ANHYDROUS
  46. VITAMIN B12 [Suspect]
     Active Substance: CYANOCOBALAMIN
  47. APO?ACETAMINOPHEN [Suspect]
     Active Substance: ACETAMINOPHEN
     Indication: PRODUCT USED FOR UNKNOWN INDICATION
     Route: 048
  48. APO?AMITRIPTYLINE [Suspect]
     Active Substance: AMITRIPTYLINE HYDROCHLORIDE
     Indication: PRODUCT USED FOR UNKNOWN INDICATION
     Route: 048
  49. DIMENHYDRINATE. [Suspect]
     Active Substance: DIMENHYDRINATE
  50. FLOVENT [Suspect]
     Active Substance: FLUTICASONE PROPIONATE
     Indication: PRODUCT USED FOR UNKNOWN INDICATION
  51. MEPOLIZUMAB [Suspect]
     Active Substance: MEPOLIZUMAB
     Indication: PRODUCT USED FOR UNKNOWN INDICATION
     Route: 058
  52. MOMETASONE [Suspect]
     Active Substance: MOMETASONE
  53. NOVORAPID [Suspect]
     Active Substance: INSULIN ASPART
     Route: 042
  54. PMS?NITROFURANTOIN [Suspect]
     Active Substance: NITROFURANTOIN
     Indication: PRODUCT USED FOR UNKNOWN INDICATION
  55. QUINAPRIL HYDROCHLORIDE. [Suspect]
     Active Substance: QUINAPRIL HYDROCHLORIDE
  56. RATIO?LACTULOSE [Suspect]
     Active Substance: LACTULOSE
  57. RATIO?LACTULOSE [Suspect]
     Active Substance: LACTULOSE
  58. RATIO?LACTULOSE [Suspect]
     Active Substance: LACTULOSE
  59. THEOPHYLLINE [Suspect]
     Active Substance: THEOPHYLLINE ANHYDROUS
  60. UNIPHYL [Suspect]
     Active Substance: THEOPHYLLINE ANHYDROUS
     Indication: PRODUCT USED FOR UNKNOWN INDICATION
  61. APO?PREDNISONE [Suspect]
     Active Substance: PREDNISONE
     Route: 048
  62. ATROVENT [Suspect]
     Active Substance: IPRATROPIUM BROMIDE
     Indication: PRODUCT USED FOR UNKNOWN INDICATION
  63. NITROGLYCERIN. [Suspect]
     Active Substance: NITROGLYCERIN
     Indication: PRODUCT USED FOR UNKNOWN INDICATION
  64. NITROGLYCERIN. [Suspect]
     Active Substance: NITROGLYCERIN
  65. PMS?NITROFURANTOIN [Suspect]
     Active Substance: NITROFURANTOIN
  66. SALBUTAMOL [Suspect]
     Active Substance: ALBUTEROL
     Indication: PRODUCT USED FOR UNKNOWN INDICATION
  67. SALBUTAMOL [Suspect]
     Active Substance: ALBUTEROL
  68. SALBUTAMOL [Suspect]
     Active Substance: ALBUTEROL
  69. FLUOXETINE 40MG [Suspect]
     Active Substance: FLUOXETINE HYDROCHLORIDE
     Indication: PRODUCT USED FOR UNKNOWN INDICATION
     Route: 065
  70. APO?PREDNISONE [Suspect]
     Active Substance: PREDNISONE
     Route: 048
  71. AZITHROMYCIN ANHYDROUS. [Suspect]
     Active Substance: AZITHROMYCIN ANHYDROUS
     Indication: PRODUCT USED FOR UNKNOWN INDICATION
  72. METFORMIN HYDROCHLORIDE. [Suspect]
     Active Substance: METFORMIN HYDROCHLORIDE
     Indication: PRODUCT USED FOR UNKNOWN INDICATION
  73. METFORMIN HYDROCHLORIDE. [Suspect]
     Active Substance: METFORMIN HYDROCHLORIDE
  74. SPIRIVA RESPIMAT [Suspect]
     Active Substance: TIOTROPIUM BROMIDE
  75. VITAMIN B12 [Suspect]
     Active Substance: CYANOCOBALAMIN
  76. VITAMIN B12 [Suspect]
     Active Substance: CYANOCOBALAMIN
  77. DICETEL [Suspect]
     Active Substance: PINAVERIUM BROMIDE
     Indication: PRODUCT USED FOR UNKNOWN INDICATION
     Route: 048
  78. LOPERAMIDE [Suspect]
     Active Substance: LOPERAMIDE
     Indication: PRODUCT USED FOR UNKNOWN INDICATION
  79. MONTELUKAST [Suspect]
     Active Substance: MONTELUKAST SODIUM
     Indication: PRODUCT USED FOR UNKNOWN INDICATION
  80. MONTELUKAST [Suspect]
     Active Substance: MONTELUKAST SODIUM
  81. MONTELUKAST [Suspect]
     Active Substance: MONTELUKAST SODIUM
  82. PMS?NITROFURANTOIN [Suspect]
     Active Substance: NITROFURANTOIN
  83. PREDNISONE. [Suspect]
     Active Substance: PREDNISONE
  84. QUINAPRIL HYDROCHLORIDE. [Suspect]
     Active Substance: QUINAPRIL HYDROCHLORIDE
  85. RATIO?LACTULOSE [Suspect]
     Active Substance: LACTULOSE
     Indication: PRODUCT USED FOR UNKNOWN INDICATION
     Route: 048
  86. SPIRIVA RESPIMAT [Suspect]
     Active Substance: TIOTROPIUM BROMIDE
  87. SPIRIVA RESPIMAT [Suspect]
     Active Substance: TIOTROPIUM BROMIDE
  88. UNIPHYL [Suspect]
     Active Substance: THEOPHYLLINE ANHYDROUS
  89. UNIPHYL [Suspect]
     Active Substance: THEOPHYLLINE ANHYDROUS

REACTIONS (32)
  - Upper respiratory tract infection [Unknown]
  - Injury [Unknown]
  - Wheezing [Unknown]
  - Dyspnoea [Unknown]
  - Chest pain [Unknown]
  - Malaise [Unknown]
  - Asthma [Unknown]
  - Dyspnoea exertional [Unknown]
  - Influenza [Unknown]
  - Rhinorrhoea [Unknown]
  - Angina pectoris [Unknown]
  - Weight decreased [Unknown]
  - Depressed mood [Unknown]
  - Cough [Unknown]
  - Insomnia [Unknown]
  - Lower respiratory tract infection [Unknown]
  - Fall [Unknown]
  - Pyrexia [Unknown]
  - Heart sounds [Unknown]
  - Sleep disorder due to a general medical condition [Unknown]
  - Stress [Unknown]
  - Flank pain [Unknown]
  - Chest discomfort [Unknown]
  - Depressive symptom [Unknown]
  - Nasopharyngitis [Unknown]
  - Productive cough [Unknown]
  - Prolonged expiration [Unknown]
  - Rales [Unknown]
  - Respiration abnormal [Unknown]
  - Appetite disorder [Unknown]
  - Loss of personal independence in daily activities [Unknown]
  - Nasal congestion [Unknown]
